FAERS Safety Report 6879646-7 (Version None)
Quarter: 2010Q3

REPORT INFORMATION
  Report Type: 
  Country: None (occurrence: None)
  Receive Date: 20100728
  Receipt Date: 20091028
  Transmission Date: 20110219
  Serious: No
  Sender: FDA-Public Use
  Company Number: US-MYLANLABS-2009S1018754

PATIENT
  Age: 64 Year
  Sex: Female
  Weight: 68.95 kg

DRUGS (3)
  1. CLONIDINE HYDROCHLORIDE [Suspect]
     Indication: HYPERTENSION
     Route: 048
     Dates: start: 20090923, end: 20090923
  2. TIZANIDINE HCL [Concomitant]
     Indication: MUSCLE RELAXANT THERAPY
  3. LISINOPRIL [Concomitant]
     Indication: HYPERTENSION

REACTIONS (4)
  - GINGIVAL BLEEDING [None]
  - HANGNAIL [None]
  - PRURITUS [None]
  - RASH GENERALISED [None]
